FAERS Safety Report 7571791-6 (Version None)
Quarter: 2011Q2

REPORT INFORMATION
  Report Type: 
  Country: None (occurrence: None)
  Receive Date: 20110624
  Receipt Date: 20110608
  Transmission Date: 20111010
  Serious: No
  Sender: FDA-Public Use
  Company Number: US-B.I. PHARMACEUTICALS,INC./RIDGEFIELD-2011-BP-12466BP

PATIENT
  Age: 88 Year
  Sex: Female

DRUGS (12)
  1. ASPIRIN [Concomitant]
     Dosage: 81 MG
  2. FOLIC ACID [Concomitant]
     Dosage: 0.4 MG
  3. NITROGLYCERIN [Concomitant]
  4. PRADAXA [Suspect]
     Dates: start: 20110331, end: 20110404
  5. SYNTHROID [Concomitant]
     Dosage: 110 MCG
  6. MULTI-VITAMINS [Concomitant]
  7. COREG [Concomitant]
  8. LANOXIN [Concomitant]
     Dosage: 0.125 MG
  9. LISINOPRIL [Concomitant]
     Dosage: 2.5 MG
  10. PRILOSEC [Concomitant]
     Dosage: 20 MG
  11. ZOCOR [Concomitant]
     Dosage: 40 MG
     Dates: start: 20080213
  12. COUMADIN [Concomitant]

REACTIONS (3)
  - THROAT IRRITATION [None]
  - DYSPEPSIA [None]
  - HAEMOPTYSIS [None]
